FAERS Safety Report 5357027-5 (Version None)
Quarter: 2007Q2

REPORT INFORMATION
  Report Type: 
  Country: None (occurrence: None)
  Receive Date: 20070612
  Receipt Date: 20070612
  Transmission Date: 20071010
  Serious: Yes (Other)
  Sender: FDA-Public Use
  Company Number: None

PATIENT
  Sex: Female
  Weight: 107.9561 kg

DRUGS (2)
  1. CELEXA [Suspect]
     Indication: ANXIETY
     Dosage: 20MG 1/D PO
     Route: 048
     Dates: start: 20050221
  2. ZOLOFT [Suspect]
     Indication: ANXIETY
     Dosage: 100MG 1/D PO
     Route: 048
     Dates: start: 19950101

REACTIONS (2)
  - PALPITATIONS [None]
  - URTICARIA [None]
